FAERS Safety Report 14229971 (Version 1)
Quarter: 2017Q4

REPORT INFORMATION
  Report Type: Report from Study
  Country: US (occurrence: US)
  Receive Date: 20171128
  Receipt Date: 20171128
  Transmission Date: 20180321
  Serious: Yes (Hospitalization)
  Sender: FDA-Public Use
  Company Number: US-JNJFOC-20171030382

PATIENT
  Age: 64 Year
  Sex: Male

DRUGS (6)
  1. FLOMAX [Concomitant]
     Active Substance: TAMSULOSIN HYDROCHLORIDE
  2. VASOTEC [Concomitant]
     Active Substance: ENALAPRIL MALEATE
  3. IMBRUVICA [Suspect]
     Active Substance: IBRUTINIB
     Indication: CHRONIC LYMPHOCYTIC LEUKAEMIA
     Route: 048
     Dates: start: 20171011
  4. FAMOTIDINE. [Concomitant]
     Active Substance: FAMOTIDINE
  5. NIFEDIPINE. [Concomitant]
     Active Substance: NIFEDIPINE
  6. FOLIC ACID. [Concomitant]
     Active Substance: FOLIC ACID

REACTIONS (4)
  - Renal disorder [Unknown]
  - Pneumonia [Not Recovered/Not Resolved]
  - Pancreatic disorder [Unknown]
  - Asthenia [Not Recovered/Not Resolved]

NARRATIVE: CASE EVENT DATE: 20171120
